FAERS Safety Report 16064830 (Version 3)
Quarter: 2020Q3

REPORT INFORMATION
  Report Type: Spontaneous
  Country: US (occurrence: US)
  Receive Date: 20190312
  Receipt Date: 20200929
  Transmission Date: 20201102
  Serious: Yes (Other)
  Sender: FDA-Public Use
  Company Number: US-ASTRAZENECA-2018SF65070

PATIENT
  Sex: Female

DRUGS (64)
  1. DEXILANT [Suspect]
     Active Substance: DEXLANSOPRAZOLE
     Indication: GASTROOESOPHAGEAL REFLUX DISEASE
     Route: 065
  2. PERMETHRIN. [Concomitant]
     Active Substance: PERMETHRIN
  3. IVERMECTIN. [Concomitant]
     Active Substance: IVERMECTIN
  4. TRIAMCINOLON [Concomitant]
  5. NEXIUM [Suspect]
     Active Substance: ESOMEPRAZOLE MAGNESIUM
     Route: 048
     Dates: start: 20170821
  6. PRILOSEC OTC [Suspect]
     Active Substance: OMEPRAZOLE MAGNESIUM
     Indication: GASTROOESOPHAGEAL REFLUX DISEASE
     Dosage: 20 MG DAILY
     Route: 048
  7. PROTONIX [Suspect]
     Active Substance: PANTOPRAZOLE SODIUM
     Indication: GASTROOESOPHAGEAL REFLUX DISEASE
     Route: 065
     Dates: start: 20060316, end: 20170623
  8. PROTONIX [Suspect]
     Active Substance: PANTOPRAZOLE SODIUM
     Indication: GASTROOESOPHAGEAL REFLUX DISEASE
     Dosage: GENERIC PANTOPRAZOLE
     Route: 065
     Dates: start: 20150813, end: 20170215
  9. TOPIRAMATE. [Concomitant]
     Active Substance: TOPIRAMATE
  10. MONTELUKAST [Concomitant]
     Active Substance: MONTELUKAST SODIUM
  11. HYDROCORTISOL [Concomitant]
  12. DULOXETINE. [Concomitant]
     Active Substance: DULOXETINE
  13. MYCELEX [Concomitant]
     Active Substance: CLOTRIMAZOLE
  14. PRILOSEC [Suspect]
     Active Substance: OMEPRAZOLE MAGNESIUM
     Indication: GASTROOESOPHAGEAL REFLUX DISEASE
     Route: 048
     Dates: start: 20120301, end: 20150713
  15. PROTONIX [Suspect]
     Active Substance: PANTOPRAZOLE SODIUM
     Indication: GASTROOESOPHAGEAL REFLUX DISEASE
     Dosage: GENERIC PANTOPRAZOLE
     Route: 065
     Dates: start: 20100122, end: 20100328
  16. SERTRALINE [Concomitant]
     Active Substance: SERTRALINE HYDROCHLORIDE
  17. ALBUTEROL. [Concomitant]
     Active Substance: ALBUTEROL
  18. METHADONE [Concomitant]
     Active Substance: METHADONE HYDROCHLORIDE
  19. NEXIUM 24HR [Suspect]
     Active Substance: ESOMEPRAZOLE MAGNESIUM
     Dosage: 40 MG DAILY
     Route: 048
  20. PROTONIX [Suspect]
     Active Substance: PANTOPRAZOLE SODIUM
     Indication: GASTROOESOPHAGEAL REFLUX DISEASE
     Route: 065
  21. BUSPIRONE [Concomitant]
     Active Substance: BUSPIRONE HYDROCHLORIDE
  22. HYDROCODONE BITARTRATE AND ACETAMINOPHEN [Concomitant]
     Active Substance: ACETAMINOPHEN\HYDROCODONE BITARTRATE
  23. CYCLOBENZAPR [Concomitant]
     Active Substance: CYCLOBENZAPRINE
  24. ZOLPIDEM [Concomitant]
     Active Substance: ZOLPIDEM TARTRATE
  25. MUPIROCIN. [Concomitant]
     Active Substance: MUPIROCIN
  26. ATENOLOL. [Concomitant]
     Active Substance: ATENOLOL
  27. FLONASE [Concomitant]
     Active Substance: FLUTICASONE PROPIONATE
  28. AMBIEN [Concomitant]
     Active Substance: ZOLPIDEM TARTRATE
  29. AUGMENTIN [Concomitant]
     Active Substance: AMOXICILLIN\CLAVULANATE POTASSIUM
  30. CENTRUM [Concomitant]
     Active Substance: VITAMINS
  31. NAPROXEN. [Concomitant]
     Active Substance: NAPROXEN
  32. ZOLOFT [Concomitant]
     Active Substance: SERTRALINE HYDROCHLORIDE
  33. NEXIUM [Suspect]
     Active Substance: ESOMEPRAZOLE MAGNESIUM
     Route: 048
     Dates: start: 20170726
  34. PRILOSEC [Suspect]
     Active Substance: OMEPRAZOLE MAGNESIUM
     Indication: GASTROOESOPHAGEAL REFLUX DISEASE
     Dosage: 40 MG DAILY
     Route: 048
  35. PRILOSEC OTC [Suspect]
     Active Substance: OMEPRAZOLE MAGNESIUM
     Indication: GASTROOESOPHAGEAL REFLUX DISEASE
     Route: 048
     Dates: start: 20120301, end: 20150713
  36. DEXILANT [Suspect]
     Active Substance: DEXLANSOPRAZOLE
     Indication: GASTROOESOPHAGEAL REFLUX DISEASE
     Route: 065
     Dates: start: 20180105, end: 20180725
  37. TRAZODONE [Concomitant]
     Active Substance: TRAZODONE HYDROCHLORIDE
  38. SYMBICORT [Concomitant]
     Active Substance: BUDESONIDE\FORMOTEROL FUMARATE DIHYDRATE
  39. SPIRIVA [Concomitant]
     Active Substance: TIOTROPIUM BROMIDE MONOHYDRATE
  40. LYRICA [Concomitant]
     Active Substance: PREGABALIN
  41. AZELASTINE. [Concomitant]
     Active Substance: AZELASTINE HYDROCHLORIDE
  42. AMOX/CLAV ACID [Concomitant]
  43. SAVELLA [Concomitant]
     Active Substance: MILNACIPRAN HYDROCHLORIDE
  44. NEXIUM [Suspect]
     Active Substance: ESOMEPRAZOLE MAGNESIUM
     Dosage: 40 MG DAILY
     Route: 048
  45. PREVACID [Suspect]
     Active Substance: LANSOPRAZOLE
     Dosage: 40 MG DAILY
     Route: 065
  46. PREDNISONE. [Concomitant]
     Active Substance: PREDNISONE
  47. LORAZEPAM. [Concomitant]
     Active Substance: LORAZEPAM
  48. CELEXA [Concomitant]
     Active Substance: CITALOPRAM HYDROBROMIDE
  49. LODINE [Concomitant]
     Active Substance: ETODOLAC
  50. NEXIUM [Suspect]
     Active Substance: ESOMEPRAZOLE MAGNESIUM
     Route: 048
     Dates: start: 2010, end: 201207
  51. RANITIDINE. [Concomitant]
     Active Substance: RANITIDINE
  52. HYDROXY HCL [Concomitant]
  53. FENOFIBRIC [Concomitant]
     Active Substance: FENOFIBRIC ACID
  54. LORATADINE. [Concomitant]
     Active Substance: LORATADINE
  55. FISH OIL [Concomitant]
     Active Substance: FISH OIL
  56. ASPIRIN. [Concomitant]
     Active Substance: ASPIRIN
  57. ALBUTEROL SULFATE. [Concomitant]
     Active Substance: ALBUTEROL SULFATE
  58. ORPHENADRINE [Concomitant]
     Active Substance: ORPHENADRINE
  59. DILTIAZEM. [Concomitant]
     Active Substance: DILTIAZEM
  60. RISPERIDONE. [Concomitant]
     Active Substance: RISPERIDONE
  61. AMITRIPTYLINE [Concomitant]
     Active Substance: AMITRIPTYLINE
  62. NEURONTIN [Concomitant]
     Active Substance: GABAPENTIN
  63. SEROQUEL [Concomitant]
     Active Substance: QUETIAPINE FUMARATE
  64. NIACIN. [Concomitant]
     Active Substance: NIACIN

REACTIONS (2)
  - Chronic kidney disease [Unknown]
  - Renal injury [Unknown]
